FAERS Safety Report 8579009-2 (Version None)
Quarter: 2012Q3

REPORT INFORMATION
  Report Type: 
  Country: None (occurrence: None)
  Receive Date: 20120808
  Receipt Date: 20120731
  Transmission Date: 20120928
  Serious: Yes (Hospitalization, Other)
  Sender: FDA-Public Use
  Company Number: RO-ROCHE-1066380

PATIENT
  Sex: Female
  Weight: 96 kg

DRUGS (4)
  1. PEGASYS [Suspect]
     Indication: HEPATITIS C
     Dates: start: 20110811, end: 20110928
  2. BLINDED ALISPORIVIR [Suspect]
     Indication: HEPATITIS C
     Dosage: THE DOSE WITH ALISPORIVIR WAS HELD
     Dates: start: 20110811, end: 20110927
  3. COPEGUS [Suspect]
     Indication: HEPATITIS C
     Dates: start: 20110811, end: 20110928
  4. IRBESARTAN AND HYDROCHLOROTHIAZIDE [Concomitant]

REACTIONS (4)
  - HYPERTENSION [None]
  - CONCOMITANT DISEASE PROGRESSION [None]
  - CHEST PAIN [None]
  - LOSS OF CONSCIOUSNESS [None]
